FAERS Safety Report 9601687 (Version 1)
Quarter: 2013Q4

REPORT INFORMATION
  Report Type: Spontaneous
  Country: JP (occurrence: None)
  Receive Date: 20131002
  Receipt Date: 20131002
  Transmission Date: 20140711
  Serious: Yes (Other)
  Sender: FDA-Public Use
  Company Number: NSR_01252_2013

PATIENT
  Age: 76 Year
  Sex: Male

DRUGS (2)
  1. LAMOTRIGINE [Suspect]
     Indication: TEMPORAL LOBE EPILEPSY
     Dosage: ([DURING TITRATION] DF)
  2. SERTRALINE [Suspect]
     Indication: DEPRESSIVE SYMPTOM
     Dosage: ([TITRATED TO 50 MG])

REACTIONS (4)
  - Suicidal ideation [None]
  - Status epilepticus [None]
  - Depression [None]
  - Depressed level of consciousness [None]
